FAERS Safety Report 25071464 (Version 2)
Quarter: 2025Q3

REPORT INFORMATION
  Report Type: Report from Study
  Country: US (occurrence: US)
  Receive Date: 20250312
  Receipt Date: 20250717
  Transmission Date: 20251021
  Serious: Yes (Hospitalization)
  Sender: ABBVIE
  Company Number: US-ABBVIE-6124030

PATIENT
  Age: 23 Year
  Sex: Male

DRUGS (4)
  1. RINVOQ [Suspect]
     Active Substance: UPADACITINIB
     Indication: Colitis ulcerative
     Route: 048
     Dates: start: 20241104
  2. RINVOQ [Suspect]
     Active Substance: UPADACITINIB
     Indication: Colitis ulcerative
     Dosage: STRENGTH: 15 MG?LAST ADMIN DATE: 2025
     Route: 048
     Dates: start: 20250129
  3. RINVOQ [Suspect]
     Active Substance: UPADACITINIB
     Indication: Colitis ulcerative
     Route: 048
     Dates: start: 20241104
  4. RINVOQ [Suspect]
     Active Substance: UPADACITINIB
     Indication: Colitis ulcerative
     Dosage: STRENGTH: 30 MG
     Route: 048
     Dates: start: 202502

REACTIONS (16)
  - Haemorrhage [Not Recovered/Not Resolved]
  - Pain [Recovering/Resolving]
  - Muscle spasms [Not Recovered/Not Resolved]
  - Haematochezia [Recovering/Resolving]
  - Flatulence [Not Recovered/Not Resolved]
  - Abdominal pain [Recovering/Resolving]
  - Proctalgia [Recovering/Resolving]
  - Fatigue [Unknown]
  - Asthenia [Unknown]
  - Nausea [Recovering/Resolving]
  - Decreased appetite [Recovering/Resolving]
  - Diarrhoea [Not Recovered/Not Resolved]
  - Mucous stools [Recovering/Resolving]
  - Constipation [Not Recovered/Not Resolved]
  - Frequent bowel movements [Recovering/Resolving]
  - Defaecation urgency [Unknown]

NARRATIVE: CASE EVENT DATE: 20250129
